FAERS Safety Report 5194859-0 (Version None)
Quarter: 2006Q4

REPORT INFORMATION
  Report Type: 
  Country: None (occurrence: None)
  Receive Date: 20061229
  Receipt Date: 20061218
  Transmission Date: 20070319
  Serious: Yes (Other)
  Sender: FDA-Public Use
  Company Number: US-ROCHE-475385

PATIENT
  Sex: Female

DRUGS (1)
  1. BONIVA [Suspect]
     Indication: DRUG USE FOR UNKNOWN INDICATION
     Dosage: THE PATIENT REPORTED COMING OFF ALL MEDICATIONS 3 MONTHS AGO
     Route: 065
     Dates: end: 20060915

REACTIONS (1)
  - BREAST OPERATION [None]
